FAERS Safety Report 6647917-5 (Version None)
Quarter: 2010Q1

REPORT INFORMATION
  Report Type: 
  Country: None (occurrence: None)
  Receive Date: 20100324
  Receipt Date: 20100309
  Transmission Date: 20100710
  Serious: Yes (Other)
  Sender: FDA-Public Use
  Company Number: US-TYCO HEALTHCARE/MALLINCKRODT-T200801206

PATIENT

DRUGS (13)
  1. OPTIMARK [Suspect]
     Indication: NUCLEAR MAGNETIC RESONANCE IMAGING
     Dosage: 32 ML, SINGLE
     Dates: start: 20060619, end: 20060619
  2. METOPROLOL [Concomitant]
     Indication: HYPERTENSION
     Dosage: 100 MG DAILY
  3. NORVASC [Concomitant]
     Indication: HYPERTENSION
     Dosage: 5 MG, QD
  4. ASPIRIN [Concomitant]
     Indication: PAIN
     Dosage: 81 MG, QD
  5. LOTENSIN                           /00909102/ [Concomitant]
     Indication: HYPERTENSION
     Dosage: 40 MG, QD
     Dates: start: 20060101, end: 20070301
  6. CALCITROL                          /00508501/ [Concomitant]
     Indication: VITAMIN SUPPLEMENTATION
     Dosage: .25 MG, Q MWF
     Dates: start: 20060101, end: 20070301
  7. NEPHROCAPS [Concomitant]
     Indication: VITAMIN SUPPLEMENTATION
     Dosage: UNK, QD
     Dates: start: 20060101, end: 20070301
  8. RENAGEL                            /01459901/ [Concomitant]
     Indication: RENAL FAILURE
     Dosage: 800 MG, TID WITH MEALS
  9. TUMS ULTRA [Concomitant]
     Dosage: 2 WITH MEALS AND 1 QHS
  10. CHROMOGEN [Concomitant]
     Dosage: 1  BID
  11. CLONAZEPAM [Concomitant]
     Dosage: .25 MG, QHS
  12. RANITIDINE [Concomitant]
     Dosage: 150 MG, BID
  13. EPOCAN                             /00046602/ [Concomitant]
     Dosage: 30000 UNITS WEEKLY

REACTIONS (42)
  - ABDOMINAL PAIN [None]
  - ALDOLASE INCREASED [None]
  - ANAEMIA [None]
  - ANTINUCLEAR ANTIBODY POSITIVE [None]
  - CHILLS [None]
  - COLITIS [None]
  - COMPLICATIONS OF TRANSPLANTED KIDNEY [None]
  - COUGH [None]
  - DEAFNESS [None]
  - DEHYDRATION [None]
  - DIARRHOEA [None]
  - DIVERTICULITIS [None]
  - DRUG PRESCRIBING ERROR [None]
  - DYSPNOEA [None]
  - EYELID IRRITATION [None]
  - FATIGUE [None]
  - GASTROENTERITIS [None]
  - HERPES SIMPLEX [None]
  - HERPES ZOSTER [None]
  - HYPERHIDROSIS [None]
  - HYPERTENSION [None]
  - HYPOTENSION [None]
  - LETHARGY [None]
  - MYOSITIS [None]
  - NAUSEA [None]
  - NEPHROGENIC SYSTEMIC FIBROSIS [None]
  - OFF LABEL USE [None]
  - ORAL CANDIDIASIS [None]
  - PARAESTHESIA [None]
  - PERITONITIS [None]
  - POSTOPERATIVE WOUND COMPLICATION [None]
  - PYELONEPHRITIS [None]
  - PYREXIA [None]
  - RETROPERITONEAL HAEMATOMA [None]
  - SINUS DISORDER [None]
  - STOMATITIS [None]
  - UROSEPSIS [None]
  - VESICOURETERIC REFLUX [None]
  - VOMITING [None]
  - WEIGHT BEARING DIFFICULTY [None]
  - WEIGHT DECREASED [None]
  - WOUND INFECTION STAPHYLOCOCCAL [None]
